FAERS Safety Report 6811306-0 (Version None)
Quarter: 2010Q2

REPORT INFORMATION
  Report Type: 
  Country: None (occurrence: None)
  Receive Date: 20100630
  Receipt Date: 20091216
  Transmission Date: 20101027
  Serious: No
  Sender: FDA-Public Use
  Company Number: US-AMGEN-KDL371951

PATIENT
  Sex: Male
  Weight: 69 kg

DRUGS (5)
  1. PROCRIT [Suspect]
     Indication: ANAEMIA
     Route: 058
     Dates: start: 20090101
  2. IRON [Concomitant]
     Route: 048
  3. LOVASTATIN [Concomitant]
  4. FOLIC ACID [Concomitant]
  5. MULTI-VITAMINS [Concomitant]

REACTIONS (2)
  - BLOOD COUNT ABNORMAL [None]
  - THERAPEUTIC RESPONSE DECREASED [None]
